FAERS Safety Report 23669697 (Version 1)
Quarter: 2024Q1

REPORT INFORMATION
  Report Type: Spontaneous
  Country: CN (occurrence: CN)
  Receive Date: 20240325
  Receipt Date: 20240325
  Transmission Date: 20240409
  Serious: Yes (Other)
  Sender: FDA-Public Use
  Company Number: CN-PFIZER INC-PV202400038233

PATIENT
  Age: 49 Year
  Sex: Female
  Weight: 55 kg

DRUGS (1)
  1. METHYLPREDNISOLONE SODIUM SUCCINATE [Suspect]
     Active Substance: METHYLPREDNISOLONE SODIUM SUCCINATE
     Indication: Neuropathy peripheral
     Dosage: 120 MG, 1X/DAY
     Route: 041
     Dates: start: 20240212, end: 20240216

REACTIONS (8)
  - Pruritus [Recovering/Resolving]
  - Blood pressure increased [Unknown]
  - Hypoaesthesia [Unknown]
  - Areflexia [Unknown]
  - Tongue coated [Unknown]
  - Tongue haematoma [Unknown]
  - Tongue disorder [Unknown]
  - Hypotonia [Unknown]

NARRATIVE: CASE EVENT DATE: 20240317
